FAERS Safety Report 5457428-0 (Version None)
Quarter: 2007Q3

REPORT INFORMATION
  Report Type: 
  Country: None (occurrence: None)
  Receive Date: 20070918
  Receipt Date: 20070523
  Transmission Date: 20080115
  Serious: Yes (Hospitalization)
  Sender: FDA-Public Use
  Company Number: US-ASTRAZENECA-2007UW03986

PATIENT
  Age: 11106 Day
  Sex: Female
  Weight: 76.8 kg

DRUGS (4)
  1. SEROQUEL [Suspect]
     Indication: BIPOLAR DISORDER
     Route: 048
     Dates: start: 20061003
  2. SEROQUEL [Suspect]
     Route: 048
     Dates: start: 20070212, end: 20070218
  3. WELLBUTRIN XL [Concomitant]
     Route: 048
  4. LEXAPRO [Concomitant]
     Route: 048
     Dates: start: 20070130

REACTIONS (1)
  - EXTRAPYRAMIDAL DISORDER [None]
